FAERS Safety Report 4850745-4 (Version None)
Quarter: 2005Q4

REPORT INFORMATION
  Report Type: 
  Country: None (occurrence: None)
  Receive Date: 20051212
  Receipt Date: 20051201
  Transmission Date: 20060501
  Serious: Yes (Hospitalization)
  Sender: FDA-Public Use
  Company Number: US-BRISTOL-MYERS SQUIBB COMPANY-13201421

PATIENT
  Age: 56 Year
  Sex: Female
  Weight: 93 kg

DRUGS (4)
  1. COUMADIN [Suspect]
  2. TEMODAR [Suspect]
     Indication: ASTROCYTOMA
     Dosage: 200-400 MG/M^2-400 MG PO QD
     Route: 048
     Dates: start: 20051030, end: 20051130
  3. CARBAMAZEPINE [Concomitant]
  4. PRAVASTATIN SODIUM [Concomitant]

REACTIONS (2)
  - CONFUSIONAL STATE [None]
  - HEMIPARESIS [None]
